FAERS Safety Report 4888649-3 (Version None)
Quarter: 2005Q4

REPORT INFORMATION
  Report Type: 
  Country: None (occurrence: None)
  Receive Date: 20051215
  Receipt Date: 20050407
  Transmission Date: 20060501
  Serious: Yes (Other)
  Sender: FDA-Public Use
  Company Number: 2004100180

PATIENT
  Age: 71 Year
  Sex: Female
  Weight: 81.6475 kg

DRUGS (12)
  1. BEXTRA [Suspect]
     Indication: ARTHRITIS
     Dosage: 10 MG (10 MG,1 IN 1 D),ORAL
     Route: 048
     Dates: start: 20030101, end: 20030101
  2. FUROSEMIDE [Concomitant]
  3. METOLAZONE [Concomitant]
  4. POTASSIUM CHLORIDE [Concomitant]
  5. METFORMIN HCL [Concomitant]
  6. REPAGLINIDE (REPAGLINIDE) [Concomitant]
  7. FENOFIBRATE [Concomitant]
  8. FOLIC ACID [Concomitant]
  9. PYRIDOXINE HCL [Concomitant]
  10. ASPIRIN [Concomitant]
  11. FLUTICASONE PROPIONATE [Concomitant]
  12. SALMETEROL XINAFOATE (SALMETEROL XINAFOATE) [Concomitant]

REACTIONS (3)
  - FLUID RETENTION [None]
  - PLEURAL EFFUSION [None]
  - PULMONARY OEDEMA [None]
